FAERS Safety Report 20167526 (Version 1)
Quarter: 2021Q4

REPORT INFORMATION
  Report Type: Report from Study
  Country: CA (occurrence: CA)
  Receive Date: 20211209
  Receipt Date: 20211209
  Transmission Date: 20220303
  Serious: Yes (Other)
  Sender: FDA-Public Use
  Company Number: CA-BIOGEN-2021BI01076080

PATIENT
  Sex: Female

DRUGS (1)
  1. TECFIDERA [Suspect]
     Active Substance: DIMETHYL FUMARATE
     Indication: Multiple sclerosis
     Route: 048
     Dates: start: 20150414

REACTIONS (6)
  - Osteomyelitis [Unknown]
  - Arthralgia [Not Recovered/Not Resolved]
  - Oral disorder [Unknown]
  - Muscle spasticity [Not Recovered/Not Resolved]
  - Multiple sclerosis [Unknown]
  - Oral infection [Unknown]
